FAERS Safety Report 5442404-4 (Version None)
Quarter: 2007Q3

REPORT INFORMATION
  Report Type: 
  Country: None (occurrence: None)
  Receive Date: 20070829
  Receipt Date: 20070816
  Transmission Date: 20080115
  Serious: Yes (Hospitalization)
  Sender: FDA-Public Use
  Company Number: 2005P1000580

PATIENT
  Age: 55 Year
  Sex: Female

DRUGS (10)
  1. RETAVASE [Suspect]
     Indication: ACUTE MYOCARDIAL INFARCTION
     Dosage: 5 IU; BID; IV
     Route: 042
     Dates: start: 20050319, end: 20050319
  2. ABCIXIMAB [Suspect]
     Indication: ACUTE MYOCARDIAL INFARCTION
     Dosage: 10 MG; X1; IV, 3.5 MG; X1; IV
     Route: 042
     Dates: start: 20050319, end: 20050319
  3. ABCIXIMAB [Suspect]
     Indication: ACUTE MYOCARDIAL INFARCTION
     Dosage: 10 MG; X1; IV, 3.5 MG; X1; IV
     Route: 042
     Dates: start: 20050319, end: 20050319
  4. PLACEBO [Suspect]
     Indication: ACUTE MYOCARDIAL INFARCTION
     Dosage: 0.25 MG/KG; X1; IV
     Route: 042
     Dates: start: 20050319, end: 20050319
  5. ASPIRIN [Concomitant]
  6. CLOPIDOGREL BISULFATE [Concomitant]
  7. LISINOPRIL [Concomitant]
  8. ROSUVASTATIN [Concomitant]
  9. METOPROLOL SUCCINATE [Concomitant]
  10. THYROID TAB [Concomitant]

REACTIONS (1)
  - CHEST PAIN [None]
